FAERS Safety Report 14300208 (Version 1)
Quarter: 2017Q4

REPORT INFORMATION
  Report Type: Spontaneous
  Country: US (occurrence: US)
  Receive Date: 20171219
  Receipt Date: 20171219
  Transmission Date: 20180321
  Serious: No
  Sender: FDA-Public Use
  Company Number: US-TEVA-773245ACC

PATIENT
  Age: 6 Year
  Sex: Female

DRUGS (1)
  1. AZITHROMYCIN ANHYDROUS. [Suspect]
     Active Substance: AZITHROMYCIN ANHYDROUS
     Dosage: 200MG/5ML
     Route: 048
     Dates: start: 20170516, end: 201705

REACTIONS (4)
  - Throat irritation [Unknown]
  - Feeding disorder [Not Recovered/Not Resolved]
  - Product taste abnormal [Unknown]
  - Oral discomfort [Unknown]

NARRATIVE: CASE EVENT DATE: 201705
